FAERS Safety Report 10182055 (Version 1)
Quarter: 2014Q2

REPORT INFORMATION
  Report Type: Spontaneous
  Country: US (occurrence: US)
  Receive Date: 20140519
  Receipt Date: 20140519
  Transmission Date: 20141212
  Serious: Yes (Other)
  Sender: FDA-Public Use
  Company Number: PHHY2014US056815

PATIENT
  Age: 26 Year
  Sex: Female

DRUGS (24)
  1. CLOZAPINE [Suspect]
     Indication: SCHIZOPHRENIA, PARANOID TYPE
  2. BUPROPION [Suspect]
     Indication: SCHIZOPHRENIA, PARANOID TYPE
  3. BUPROPION [Suspect]
     Indication: APATHY
  4. BUPROPION [Suspect]
     Indication: SOCIAL AVOIDANT BEHAVIOUR
     Dosage: 8 MG, DAILY
  5. LORAZEPAM [Suspect]
     Indication: CATATONIA
  6. LORAZEPAM [Suspect]
     Indication: SOCIAL AVOIDANT BEHAVIOUR
  7. SERTRALINE HYDROCHLORIDE [Suspect]
     Indication: SCHIZOPHRENIA, PARANOID TYPE
  8. SERTRALINE HYDROCHLORIDE [Suspect]
     Indication: SOCIAL AVOIDANT BEHAVIOUR
  9. HALOPERIDOL DECANOATE [Suspect]
     Indication: SCHIZOPHRENIA
  10. HALOPERIDOL DECANOATE [Suspect]
     Dosage: 100 MG
  11. LITHIUM [Suspect]
     Indication: SCHIZOPHRENIA
  12. LITHIUM [Suspect]
     Indication: SOCIAL AVOIDANT BEHAVIOUR
  13. DIVALPROEX [Suspect]
     Indication: BIPOLAR DISORDER
  14. OLANZAPINE [Concomitant]
     Indication: SCHIZOPHRENIA, PARANOID TYPE
  15. QUETIAPINE [Concomitant]
     Indication: SCHIZOPHRENIA, PARANOID TYPE
  16. ESCITALOPRAM [Concomitant]
     Indication: SCHIZOPHRENIA, PARANOID TYPE
  17. HALOPERIDOL [Concomitant]
     Indication: SCHIZOPHRENIA, PARANOID TYPE
  18. HALOPERIDOL [Concomitant]
     Dosage: 100 MG
  19. RISPERIDONE [Concomitant]
     Indication: SCHIZOPHRENIA, PARANOID TYPE
     Route: 048
  20. RISPERIDONE [Concomitant]
     Route: 065
  21. RISPERIDONE [Concomitant]
     Dosage: 8 MG
  22. RISPERIDONE [Concomitant]
     Dosage: 6 MG
  23. AMOXAPINE [Concomitant]
     Indication: SCHIZOPHRENIA
     Dosage: 50 MG
  24. AMOXAPINE [Concomitant]
     Dosage: 200 MG

REACTIONS (2)
  - Agranulocytosis [Unknown]
  - Drug ineffective [Unknown]
